FAERS Safety Report 16415125 (Version 2)
Quarter: 2019Q3

REPORT INFORMATION
  Report Type: Spontaneous
  Country: DE (occurrence: DE)
  Receive Date: 20190611
  Receipt Date: 20190704
  Transmission Date: 20191004
  Serious: Yes (Other)
  Sender: FDA-Public Use
  Company Number: DE-PFIZER INC-2019242716

PATIENT
  Sex: Male

DRUGS (2)
  1. VENLAFAXIN RETARD HEUMANN [Suspect]
     Active Substance: VENLAFAXINE HYDROCHLORIDE
     Dosage: 150 MG, UNK
  2. CLOZAPIN NEURAXPHARM [Suspect]
     Active Substance: CLOZAPINE

REACTIONS (1)
  - Lupus-like syndrome [Unknown]
